FAERS Safety Report 14139266 (Version 4)
Quarter: 2018Q1

REPORT INFORMATION
  Report Type: Report from Study
  Country: None (occurrence: US)
  Receive Date: 20171028
  Receipt Date: 20180319
  Transmission Date: 20180508
  Serious: Yes (Other)
  Sender: FDA-Public Use
  Company Number: US-ABBVIE-17K-163-1999228-00

PATIENT
  Age: 65 Year
  Sex: Female

DRUGS (2)
  1. HUMIRA [Suspect]
     Active Substance: ADALIMUMAB
     Indication: RHEUMATOID ARTHRITIS
     Route: 058
  2. LYRICA [Suspect]
     Active Substance: PREGABALIN
     Indication: PRODUCT USED FOR UNKNOWN INDICATION
     Route: 065

REACTIONS (21)
  - Vomiting in pregnancy [Unknown]
  - Hypersensitivity [Unknown]
  - Paraesthesia [Unknown]
  - Cataract [Unknown]
  - Weight decreased [Unknown]
  - Hypersensitivity [Recovered/Resolved]
  - Trigger finger [Unknown]
  - Abdominal pain upper [Unknown]
  - Pallor [Unknown]
  - Rhinorrhoea [Recovered/Resolved]
  - Psoriatic arthropathy [Unknown]
  - Dyspnoea [Unknown]
  - Chest pain [Unknown]
  - Pain [Unknown]
  - Systemic lupus erythematosus [Unknown]
  - Gait disturbance [Unknown]
  - Panic attack [Unknown]
  - Hyperhidrosis [Unknown]
  - Cough [Unknown]
  - Blood pressure increased [Unknown]
  - Headache [Unknown]

NARRATIVE: CASE EVENT DATE: 201710
